FAERS Safety Report 21192467 (Version 1)
Quarter: 2022Q3

REPORT INFORMATION
  Report Type: Spontaneous
  Country: US (occurrence: US)
  Receive Date: 20220809
  Receipt Date: 20220809
  Transmission Date: 20221027
  Serious: No
  Sender: FDA-Public Use
  Company Number: US-AMGEN-USASP2022133931

PATIENT
  Sex: Male

DRUGS (2)
  1. REPATHA [Suspect]
     Active Substance: EVOLOCUMAB
     Indication: Cerebrovascular accident
     Dosage: 140 MILLIGRAM/ MILLILITER, Q2WK
     Route: 065
     Dates: start: 201908
  2. REPATHA [Suspect]
     Active Substance: EVOLOCUMAB
     Dosage: 40 MILLIGRAM/ MILLILITER, QMO
     Route: 065

REACTIONS (3)
  - Product storage error [Unknown]
  - Intercepted product administration error [Unknown]
  - Off label use [Unknown]
